FAERS Safety Report 9265428 (Version 2)
Quarter: 2013Q3

REPORT INFORMATION
  Report Type: Spontaneous
  Country: US (occurrence: US)
  Receive Date: 20130501
  Receipt Date: 20130724
  Transmission Date: 20140515
  Serious: Yes (Other)
  Sender: FDA-Public Use
  Company Number: US-TEVA-401280USA

PATIENT
  Age: 33 Year
  Sex: Female
  Weight: 77.18 kg

DRUGS (1)
  1. PLAN B ONE-STEP [Suspect]
     Indication: POST COITAL CONTRACEPTION
     Dosage: 1.5 MILLIGRAM DAILY;
     Route: 048
     Dates: start: 20120829, end: 20120829

REACTIONS (5)
  - Pregnancy after post coital contraception [Unknown]
  - Menstruation delayed [Unknown]
  - Breast tenderness [Unknown]
  - Nausea [Unknown]
  - Drug ineffective [Unknown]
